FAERS Safety Report 6105679-4 (Version None)
Quarter: 2009Q1

REPORT INFORMATION
  Report Type: 
  Country: None (occurrence: None)
  Receive Date: 20090227
  Receipt Date: 20081224
  Transmission Date: 20090719
  Serious: Yes (Other)
  Sender: FDA-Public Use
  Company Number: RB-3941-2008

PATIENT
  Age: 26 Year
  Sex: Female

DRUGS (3)
  1. SUBOXONE [Suspect]
     Indication: DRUG DEPENDENCE
     Dosage: 2 MG QD SUBLINGUAL, 2 MG QD SUBLINGUAL
     Route: 060
     Dates: start: 20080811, end: 20080909
  2. SUBOXONE [Suspect]
     Indication: DRUG DEPENDENCE
     Dosage: 2 MG QD SUBLINGUAL, 2 MG QD SUBLINGUAL
     Route: 060
     Dates: start: 20080922
  3. SUBUTEX [Suspect]
     Indication: DRUG DEPENDENCE
     Dosage: 2 MG QD SUBLINGUAL
     Route: 060
     Dates: start: 20080910, end: 20080921

REACTIONS (2)
  - DRUG WITHDRAWAL SYNDROME [None]
  - SELECTIVE ABORTION [None]
